FAERS Safety Report 4569318-6 (Version None)
Quarter: 2005Q1

REPORT INFORMATION
  Report Type: 
  Country: None (occurrence: None)
  Receive Date: 20050201
  Receipt Date: 20041112
  Transmission Date: 20050727
  Serious: Yes (Other)
  Sender: FDA-Public Use
  Company Number: 2004091361

PATIENT
  Age: 54 Year
  Sex: Male
  Weight: 94.3482 kg

DRUGS (2)
  1. BEXTRA [Suspect]
     Indication: RHEUMATOID ARTHRITIS
     Dosage: 10 MG (10 MG, 1 IN 1 D), ORAL
     Route: 048
     Dates: start: 20030801, end: 20041106
  2. NAPROXEN [Concomitant]

REACTIONS (4)
  - CARDIAC DISORDER [None]
  - CHEST PAIN [None]
  - PARAESTHESIA [None]
  - RESPIRATORY DISORDER [None]
